FAERS Safety Report 18089908 (Version 3)
Quarter: 2020Q4

REPORT INFORMATION
  Report Type: Spontaneous
  Country: AU (occurrence: AU)
  Receive Date: 20200729
  Receipt Date: 20201203
  Transmission Date: 20210113
  Serious: Yes (Hospitalization)
  Sender: FDA-Public Use
  Company Number: AU-TEVA-2020-AU-1806301

PATIENT
  Age: 57 Year
  Sex: Male

DRUGS (4)
  1. IMATINIB MESYLATE. [Suspect]
     Active Substance: IMATINIB MESYLATE
     Indication: CHRONIC MYELOID LEUKAEMIA
     Dosage: 600 MILLIGRAM DAILY;
     Route: 065
     Dates: start: 20130405, end: 20200420
  2. DASATINIB. [Concomitant]
     Active Substance: DASATINIB
     Indication: CHRONIC MYELOID LEUKAEMIA
     Dosage: 100 MILLIGRAM DAILY;
     Route: 065
     Dates: start: 20150603, end: 20160908
  3. NILOTINIB [Concomitant]
     Active Substance: NILOTINIB
     Indication: CHRONIC MYELOID LEUKAEMIA
     Dosage: 600 MILLIGRAM DAILY;
     Route: 065
     Dates: start: 20130506, end: 20150323
  4. IMATINIB MESYLATE. [Suspect]
     Active Substance: IMATINIB MESYLATE
     Dosage: 400 MILLIGRAM DAILY;
     Route: 065
     Dates: start: 20130424

REACTIONS (11)
  - Adverse event [Unknown]
  - Pyrexia [Recovered/Resolved]
  - Abdominal pain [Unknown]
  - Toxicity to various agents [Unknown]
  - Vomiting [Unknown]
  - Drug intolerance [Unknown]
  - Muscular weakness [Recovered/Resolved]
  - Sensory disturbance [Recovered/Resolved]
  - Diplopia [Unknown]
  - Areflexia [Recovered/Resolved]
  - Diarrhoea [Recovered/Resolved]

NARRATIVE: CASE EVENT DATE: 20130420
